FAERS Safety Report 16062242 (Version 2)
Quarter: 2019Q3

REPORT INFORMATION
  Report Type: Spontaneous
  Country: US (occurrence: US)
  Receive Date: 20190312
  Receipt Date: 20190710
  Transmission Date: 20191004
  Serious: No
  Sender: FDA-Public Use
  Company Number: US-PFIZER INC-2018499485

PATIENT
  Age: 11 Year
  Sex: Male

DRUGS (1)
  1. GENOTROPIN [Suspect]
     Active Substance: SOMATROPIN
     Dosage: 1.6 MG, DAILY
     Dates: start: 20170327

REACTIONS (5)
  - Decreased appetite [Unknown]
  - Wrong technique in device usage process [Unknown]
  - Pain in extremity [Unknown]
  - Diarrhoea [Unknown]
  - Device use issue [Unknown]
